FAERS Safety Report 9224780 (Version 2)
Quarter: 2013Q3

REPORT INFORMATION
  Report Type: Spontaneous
  Country: FR (occurrence: FR)
  Receive Date: 20130411
  Receipt Date: 20130813
  Transmission Date: 20140515
  Serious: Yes (Other)
  Sender: FDA-Public Use
  Company Number: FR-SANOFI-AVENTIS-2013SA036362

PATIENT
  Age: 22 Year
  Sex: Female

DRUGS (2)
  1. ARAVA [Suspect]
     Indication: RHEUMATOID ARTHRITIS
     Route: 048
     Dates: start: 201207, end: 201209
  2. IMETH [Suspect]
     Indication: RHEUMATOID ARTHRITIS
     Dosage: STRENGTH: 10 MG
     Route: 048
     Dates: start: 201209

REACTIONS (3)
  - Pulmonary arterial hypertension [Recovering/Resolving]
  - Malaise [Unknown]
  - Tachycardia [Unknown]
